FAERS Safety Report 9765403 (Version 1)
Quarter: 2013Q4

REPORT INFORMATION
  Report Type: Spontaneous
  Country: US (occurrence: US)
  Receive Date: 20131217
  Receipt Date: 20131217
  Transmission Date: 20140711
  Serious: No
  Sender: FDA-Public Use
  Company Number: US-BIOGENIDEC-2013BI110235

PATIENT
  Age: 32 Year
  Sex: Male

DRUGS (3)
  1. TECFIDERA [Suspect]
     Indication: PRODUCT USED FOR UNKNOWN INDICATION
     Route: 048
     Dates: start: 20130912
  2. VITAMIN D [Concomitant]
  3. RITALIN [Concomitant]

REACTIONS (6)
  - Blister [Unknown]
  - Swollen tongue [Unknown]
  - Tongue blistering [Unknown]
  - Acarodermatitis [Unknown]
  - Rash [Unknown]
  - Pruritus [Unknown]
